FAERS Safety Report 7206648-3 (Version None)
Quarter: 2010Q4

REPORT INFORMATION
  Report Type: 
  Country: None (occurrence: None)
  Receive Date: 20101217
  Receipt Date: 20101207
  Transmission Date: 20110411
  Serious: Yes (Hospitalization)
  Sender: FDA-Public Use
  Company Number: 023554

PATIENT
  Age: 48 Year
  Sex: Male

DRUGS (1)
  1. KEPPRA [Suspect]
     Dosage: (750MG)

REACTIONS (2)
  - CHEMOTHERAPY [None]
  - HOSPITALISATION [None]
